FAERS Safety Report 14375149 (Version 1)
Quarter: 2018Q1

REPORT INFORMATION
  Report Type: Spontaneous
  Country: ES (occurrence: ES)
  Receive Date: 20180110
  Receipt Date: 20180110
  Transmission Date: 20180509
  Serious: Yes (Disabling)
  Sender: FDA-Public Use
  Company Number: None

PATIENT
  Age: 47 Year
  Sex: Female
  Weight: 58 kg

DRUGS (1)
  1. CIPROFLOXACINO TARBIS 500MG [Suspect]
     Active Substance: CIPROFLOXACIN HYDROCHLORIDE
     Indication: URINARY TRACT INFECTION
     Dosage: ?          QUANTITY:1 TABLET(S);?
     Route: 048

REACTIONS (6)
  - Joint injury [None]
  - Mobility decreased [None]
  - Tendonitis [None]
  - Bursitis [None]
  - Back pain [None]
  - Arthralgia [None]

NARRATIVE: CASE EVENT DATE: 20171001
